FAERS Safety Report 7400487-6 (Version None)
Quarter: 2011Q2

REPORT INFORMATION
  Report Type: 
  Country: None (occurrence: None)
  Receive Date: 20110407
  Receipt Date: 20110401
  Transmission Date: 20111010
  Serious: Yes (Death, Life-Threatening, Hospitalization, Other)
  Sender: FDA-Public Use
  Company Number: FR-PFIZER INC-2009209375

PATIENT
  Age: 50 Year
  Sex: Female
  Weight: 42 kg

DRUGS (8)
  1. SOMATROPIN [Suspect]
     Indication: GROWTH HORMONE DEFICIENCY
     Dosage: 0.5 MG, 1X/DAY
     Dates: start: 20070604
  2. INNOHEP [Concomitant]
     Dosage: 0.4 MG A DAY
     Route: 058
     Dates: start: 20090708
  3. KETAMINE [Concomitant]
     Dosage: 15 MG A DAY
     Route: 042
     Dates: start: 20090831
  4. SOLU-MEDROL [Concomitant]
     Dosage: 120 MG A DAY
     Route: 048
     Dates: start: 20090831
  5. SOMATROPIN [Suspect]
     Indication: HYPOPITUITARISM
  6. LYRICA [Concomitant]
     Dosage: 75 MG A DAY
     Route: 048
     Dates: start: 20090831
  7. MORPHINE [Concomitant]
     Dosage: 2 MG A DAY
     Route: 041
     Dates: start: 20090831
  8. RIVOTRIL [Concomitant]
     Dosage: 5 DROPS A DAY
     Route: 048
     Dates: start: 20090831

REACTIONS (5)
  - BONE PAIN [None]
  - DERMOID CYST [None]
  - NEUROENDOCRINE TUMOUR [None]
  - GENERAL PHYSICAL HEALTH DETERIORATION [None]
  - METASTATIC NEOPLASM [None]
